FAERS Safety Report 4710639-1 (Version None)
Quarter: 2005Q3

REPORT INFORMATION
  Report Type: 
  Country: None (occurrence: None)
  Receive Date: 20050707
  Receipt Date: 20050624
  Transmission Date: 20060218
  Serious: Yes (Hospitalization, Other)
  Sender: FDA-Public Use
  Company Number: FRWYE771024JUN05

PATIENT
  Age: 53 Year
  Sex: Female

DRUGS (1)
  1. EFFEXOR [Suspect]
     Dosage: OVERDOSE AMOUNT WAS 120 TABLETS (IE 3 G) ORAL
     Route: 048
     Dates: start: 20050603, end: 20050603

REACTIONS (11)
  - ALANINE AMINOTRANSFERASE INCREASED [None]
  - AMNESIA [None]
  - ASPARTATE AMINOTRANSFERASE INCREASED [None]
  - DISORIENTATION [None]
  - HYPOTENSION [None]
  - INTENTIONAL MISUSE [None]
  - MYOCLONUS [None]
  - OPSOCLONUS MYOCLONUS [None]
  - OVERDOSE [None]
  - RHABDOMYOLYSIS [None]
  - SUICIDE ATTEMPT [None]
